FAERS Safety Report 16207275 (Version 1)
Quarter: 2019Q2

REPORT INFORMATION
  Report Type: Spontaneous
  Country: US (occurrence: US)
  Receive Date: 20190313
  Receipt Date: 20190313
  Transmission Date: 20190711
  Serious: No
  Sender: FDA-Public Use
  Company Number: None

PATIENT
  Age: 83 Year
  Sex: Male

DRUGS (4)
  1. XGEVA [Suspect]
     Active Substance: DENOSUMAB
     Indication: PROSTATE CANCER
     Route: 058
     Dates: start: 201812
  2. XGEVA [Suspect]
     Active Substance: DENOSUMAB
     Indication: BONE CANCER
     Route: 058
     Dates: start: 201812
  3. ERLEADA [Suspect]
     Active Substance: APALUTAMIDE
     Indication: PROSTATE CANCER
  4. ERLEADA [Suspect]
     Active Substance: APALUTAMIDE
     Indication: BONE CANCER

REACTIONS (4)
  - Asthenia [None]
  - Blood urine present [None]
  - Internal haemorrhage [None]
  - Medical procedure [None]
